FAERS Safety Report 19165263 (Version 3)
Quarter: 2021Q3

REPORT INFORMATION
  Report Type: Other
  Country: JP (occurrence: JP)
  Receive Date: 20210421
  Receipt Date: 20210915
  Transmission Date: 20211014
  Serious: Yes (Hospitalization)
  Sender: FDA-Public Use
  Company Number: JP-ROCHE-2813658

PATIENT
  Age: 56 Year
  Sex: Female
  Weight: 124 kg

DRUGS (4)
  1. AZATHIOPRINE. [Concomitant]
     Active Substance: AZATHIOPRINE
  2. SATRALIZUMAB. [Suspect]
     Active Substance: SATRALIZUMAB
     Indication: NEUROMYELITIS OPTICA SPECTRUM DISORDER
     Route: 058
     Dates: start: 20210118
  3. SATRALIZUMAB. [Suspect]
     Active Substance: SATRALIZUMAB
     Route: 058
     Dates: start: 20210510
  4. PREDONINE [Concomitant]
     Active Substance: PREDNISOLONE

REACTIONS (4)
  - Off label use [Unknown]
  - Blood triglycerides increased [Not Recovered/Not Resolved]
  - Cellulitis [Recovered/Resolved]
  - Blood cholesterol increased [Recovered/Resolved]

NARRATIVE: CASE EVENT DATE: 20210118
